FAERS Safety Report 25931214 (Version 1)
Quarter: 2025Q4

REPORT INFORMATION
  Report Type: Report from Study
  Country: CA (occurrence: CA)
  Receive Date: 20251016
  Receipt Date: 20251016
  Transmission Date: 20260119
  Serious: Yes (Hospitalization)
  Sender: ABBVIE
  Company Number: CA-ABBVIE-6504724

PATIENT
  Age: 52 Year
  Sex: Male

DRUGS (1)
  1. SKYRIZI [Suspect]
     Active Substance: RISANKIZUMAB-RZAA
     Indication: Crohn^s disease
     Dosage: AT WEEK 12 AND EVERY 8 WEEKS AFTER?INJ OBI
     Route: 058
     Dates: start: 20241001

REACTIONS (1)
  - Complications of transplanted liver [Recovering/Resolving]

NARRATIVE: CASE EVENT DATE: 20250809
